FAERS Safety Report 9148266 (Version 1)
Quarter: 2013Q1

REPORT INFORMATION
  Report Type: Spontaneous
  Country: US (occurrence: None)
  Receive Date: 20130228
  Receipt Date: 20130228
  Transmission Date: 20140127
  Serious: No
  Sender: FDA-Public Use
  Company Number: None

PATIENT
  Sex: Female
  Weight: 104.78 kg

DRUGS (3)
  1. BUTRANS [Suspect]
     Indication: RHEUMATOID ARTHRITIS
     Route: 062
     Dates: start: 201301
  2. BUTRANS [Suspect]
     Route: 062
     Dates: start: 201301
  3. BUTRANS [Suspect]
     Indication: ARTHRALGIA
     Route: 062
     Dates: start: 201301

REACTIONS (5)
  - Application site erythema [None]
  - Application site vesicles [None]
  - Application site burn [None]
  - Chemical injury [None]
  - Application site scar [None]
